FAERS Safety Report 8016500-1 (Version None)
Quarter: 2011Q4

REPORT INFORMATION
  Report Type: 
  Country: None (occurrence: None)
  Receive Date: 20111230
  Receipt Date: 20111222
  Transmission Date: 20120403
  Serious: Yes (Death)
  Sender: FDA-Public Use
  Company Number: JP-GENZYME-THYM-1002143

PATIENT
  Sex: Male
  Weight: 22 kg

DRUGS (79)
  1. POLYMYXIN B SULFATE [Concomitant]
     Indication: PRODUCT USED FOR UNKNOWN INDICATION
     Dosage: UNK
     Dates: start: 20090216, end: 20090324
  2. FLURBIPROFEN [Concomitant]
     Dosage: UNK
     Dates: start: 20090325, end: 20090325
  3. GLYCERIN [Concomitant]
     Indication: CONSTIPATION
     Dosage: 40 ML, QD
     Dates: start: 20090222, end: 20090224
  4. HEPARIN [Concomitant]
     Dosage: UNK
     Dates: start: 20090310, end: 20090310
  5. KETOPROFEN [Concomitant]
     Indication: PRODUCT USED FOR UNKNOWN INDICATION
     Dosage: UNK
     Dates: start: 20090314, end: 20090314
  6. PROCATEROL HCL [Concomitant]
     Indication: PRODUCT USED FOR UNKNOWN INDICATION
     Dosage: 0.3 ML, BID
     Dates: start: 20090318, end: 20090324
  7. CHLORPHENIRAMINE MALEATE [Concomitant]
     Dosage: 0.5 ML, UNK
     Dates: start: 20090308, end: 20090308
  8. CHLORPHENIRAMINE MALEATE [Concomitant]
     Dosage: 0.5 ML, UNK
     Dates: start: 20090316, end: 20090316
  9. MENATETRENONE [Concomitant]
     Dosage: 10 MG, UNK
     Dates: start: 20090309, end: 20090311
  10. MENATETRENONE [Concomitant]
     Dosage: 10 MG, UNK
     Dates: start: 20090323, end: 20090324
  11. CLARITHROMYCIN [Concomitant]
     Indication: PRODUCT USED FOR UNKNOWN INDICATION
     Dosage: 80 MG, TID
     Dates: start: 20090216, end: 20090221
  12. FAMOTIDINE [Concomitant]
     Indication: PRODUCT USED FOR UNKNOWN INDICATION
     Dosage: UNK
     Dates: start: 20090324, end: 20090331
  13. HEPARIN [Concomitant]
     Indication: PROPHYLAXIS
     Dosage: UNK
     Dates: start: 20090218, end: 20090331
  14. CHLORPHENIRAMINE MALEATE [Concomitant]
     Dosage: 0.5 ML, UNK
     Dates: start: 20090322, end: 20090322
  15. MIXED AMINO ACID CARBOHYDRATE ELECTROLYTE VITAMIN COMBINED DRUG [Concomitant]
     Indication: PRODUCT USED FOR UNKNOWN INDICATION
     Dosage: 1103 ML, UNK
     Dates: start: 20090225, end: 20090331
  16. METHOTREXATE [Concomitant]
     Dosage: 8.5 MG, UNK
     Dates: start: 20090303, end: 20090303
  17. VORICONAZOLE [Concomitant]
     Indication: PRODUCT USED FOR UNKNOWN INDICATION
     Dosage: 50 MG, BID
     Dates: start: 20090216, end: 20090302
  18. FLURBIPROFEN [Concomitant]
     Indication: PRODUCT USED FOR UNKNOWN INDICATION
     Dosage: UNK
     Dates: start: 20090220, end: 20090220
  19. CANDESARTAN CILEXETIL [Concomitant]
     Dosage: 4 MG, QD
     Dates: start: 20090331, end: 20090331
  20. BETAMETHASON [Concomitant]
     Indication: PRODUCT USED FOR UNKNOWN INDICATION
     Dosage: UNK
     Dates: start: 20090306, end: 20090306
  21. BUDESONIDE [Concomitant]
     Indication: PRODUCT USED FOR UNKNOWN INDICATION
     Dosage: 0.25 MG, BID
     Dates: start: 20090318, end: 20090324
  22. LOPERAMIDE HCL [Concomitant]
     Indication: PRODUCT USED FOR UNKNOWN INDICATION
     Dosage: UNK
     Dates: start: 20090320, end: 20090322
  23. CHLORPHENIRAMINE MALEATE [Concomitant]
     Dosage: 0.5 ML, UNK
     Dates: start: 20090311, end: 20090311
  24. CHLORPHENIRAMINE MALEATE [Concomitant]
     Dosage: 0.5 ML, UNK
     Dates: start: 20090314, end: 20090314
  25. CHLORPHENIRAMINE MALEATE [Concomitant]
     Dosage: 0.5 ML, UNK
     Dates: start: 20090320, end: 20090320
  26. FILGRASTIM [Concomitant]
     Indication: PRODUCT USED FOR UNKNOWN INDICATION
     Dosage: 300 MCG, UNK
     Dates: start: 20090302, end: 20090323
  27. IMMUNOGLOBULIN HUMAN NORMAL [Concomitant]
     Indication: PRODUCT USED FOR UNKNOWN INDICATION
     Dosage: 2.5 MG, UNK
     Dates: start: 20090312, end: 20090312
  28. THYMOGLOBULIN [Suspect]
     Indication: BONE MARROW CONDITIONING REGIMEN
     Dosage: 50 MG, QD
     Route: 042
     Dates: start: 20090220, end: 20090223
  29. VORICONAZOLE [Concomitant]
     Dosage: 50 MG, BID
     Dates: start: 20090304, end: 20090331
  30. MEQUITAZINE [Concomitant]
     Indication: PRODUCT USED FOR UNKNOWN INDICATION
     Dosage: 3 MG, BID
     Dates: start: 20090216, end: 20090331
  31. SODIUM PICOSULFATE [Concomitant]
     Indication: CONSTIPATION
     Dosage: 10 ML, QD
     Dates: start: 20090222, end: 20090222
  32. HEPARIN [Concomitant]
     Indication: PRODUCT USED FOR UNKNOWN INDICATION
     Dosage: UNK
     Dates: start: 20090305, end: 20090305
  33. TACROLIMUS [Concomitant]
     Dosage: UNK
     Dates: start: 20090313, end: 20090313
  34. FAMOTIDINE [Concomitant]
     Dosage: 10 MG, UNK
     Dates: start: 20090228, end: 20090323
  35. PREDNISOLONE [Concomitant]
     Dosage: 25 MG, TID
     Dates: start: 20090330, end: 20090331
  36. GRANISETRON HCL [Concomitant]
     Indication: PRODUCT USED FOR UNKNOWN INDICATION
     Dosage: 3 MG, BID
     Dates: start: 20090218, end: 20090225
  37. FLUDARABINE PHOSPHATE [Concomitant]
     Indication: PRODUCT USED FOR UNKNOWN INDICATION
     Dosage: 26 MG, UNK
     Dates: start: 20090218, end: 20090223
  38. CHLORPHENIRAMINE MALEATE [Concomitant]
     Indication: PREMEDICATION
     Dosage: 1 ML, QD
     Dates: start: 20090220, end: 20090225
  39. MENATETRENONE [Concomitant]
     Dosage: 10 MG, UNK
     Dates: start: 20090316, end: 20090318
  40. HYDROCORTISONE SODIUM SUCCINATE [Concomitant]
     Dosage: 100 MG, UNK
     Dates: start: 20090306, end: 20090306
  41. METHOTREXATE [Concomitant]
     Dosage: 8.5 MG, UNK
     Dates: start: 20090308, end: 20090308
  42. PREDNISOLONE SODIUM SUCCINATE INJ [Concomitant]
     Dosage: UNK
     Dates: start: 20090317, end: 20090324
  43. CLARITHROMYCIN [Concomitant]
     Dosage: 80 MG, TID
     Dates: start: 20090223, end: 20090223
  44. CANDESARTAN CILEXETIL [Concomitant]
     Indication: PRODUCT USED FOR UNKNOWN INDICATION
     Dosage: 4 MG, QD
     Dates: start: 20090225, end: 20090331
  45. TACROLIMUS [Concomitant]
     Indication: PRODUCT USED FOR UNKNOWN INDICATION
     Dosage: UNK
     Dates: start: 20090306, end: 20090306
  46. PREDNISOLONE [Concomitant]
     Indication: PRODUCT USED FOR UNKNOWN INDICATION
     Dosage: 15 MG, TID
     Dates: start: 20090325, end: 20090330
  47. CHLORPHENIRAMINE MALEATE [Concomitant]
     Dosage: 1.5 ML, QD
     Dates: start: 20090305, end: 20090306
  48. MENATETRENONE [Concomitant]
     Dosage: 10 MG, UNK
     Dates: start: 20090303, end: 20090304
  49. HYDROCORTISONE SODIUM SUCCINATE [Concomitant]
     Indication: PRODUCT USED FOR UNKNOWN INDICATION
     Dosage: 100 MG, UNK
     Dates: start: 20090225, end: 20090225
  50. METHOTREXATE [Concomitant]
     Indication: PROPHYLAXIS AGAINST GRAFT VERSUS HOST DISEASE
     Dosage: 13 MG, UNK
     Dates: start: 20090226, end: 20090226
  51. IMMUNOGLOBULIN HUMAN NORMAL [Concomitant]
     Dosage: 2.5 MG, UNK
     Dates: start: 20090305, end: 20090305
  52. PREDNISOLONE SODIUM SUCCINATE INJ [Concomitant]
     Indication: PRODUCT USED FOR UNKNOWN INDICATION
     Dosage: 10 MG, UNK
     Dates: start: 20090312, end: 20090317
  53. FREEZE-DRIED ION EXCHANGE RESI [Concomitant]
     Indication: PRODUCT USED FOR UNKNOWN INDICATION
     Dosage: 2.5 MG, QD
     Dates: start: 20090331, end: 20090331
  54. TACROLIMUS [Concomitant]
     Dosage: 1 MG, BID
     Dates: start: 20090328, end: 20090331
  55. TACROLIMUS [Concomitant]
     Dosage: 60 MG, QD
     Dates: start: 20090224, end: 20090327
  56. CEFOZOPRAN HYDROCHLORIDE [Concomitant]
     Indication: PRODUCT USED FOR UNKNOWN INDICATION
     Dosage: UNK
     Dates: start: 20090217, end: 20090310
  57. CHLORPHENIRAMINE MALEATE [Concomitant]
     Dosage: UNK
     Dates: start: 20090318, end: 20090318
  58. RAMOSETRON HYDROCHLORIDE [Concomitant]
     Indication: PRODUCT USED FOR UNKNOWN INDICATION
     Dosage: 0.3 MG, UNK
     Dates: start: 20090220, end: 20090220
  59. MELPHALAN HYDROCHLORIDE [Concomitant]
     Indication: PRODUCT USED FOR UNKNOWN INDICATION
     Dosage: 60 MG, QD
     Dates: start: 20090222, end: 20090223
  60. HAPTOGLOBINS [Concomitant]
     Indication: PRODUCT USED FOR UNKNOWN INDICATION
     Dosage: 2000 U, UNK
     Dates: start: 20090225, end: 20090225
  61. METOCLOPRAMIDE [Concomitant]
     Indication: PRODUCT USED FOR UNKNOWN INDICATION
     Dosage: 5 MG, UNK
     Dates: start: 20090227, end: 20090227
  62. FOSCARNET SODIUM [Concomitant]
     Indication: PRODUCT USED FOR UNKNOWN INDICATION
     Dosage: 7.68 MG, UNK
     Dates: start: 20090311, end: 20090331
  63. SULFAMETHOPRIM [Concomitant]
     Indication: PRODUCT USED FOR UNKNOWN INDICATION
     Dosage: UNK
     Dates: start: 20090216, end: 20090217
  64. AMBROXOL HYDROCHLORIDE [Concomitant]
     Indication: PRODUCT USED FOR UNKNOWN INDICATION
     Dosage: 15 MG, BID
     Dates: start: 20090216, end: 20090331
  65. MIDAZOLAM [Concomitant]
     Indication: PRODUCT USED FOR UNKNOWN INDICATION
     Dosage: 3 ML, QD
     Dates: start: 20090216, end: 20090216
  66. URSODIOL [Concomitant]
     Indication: PROPHYLAXIS
     Dosage: 100 MG, BID
     Dates: start: 20090218, end: 20090331
  67. TACROLIMUS [Concomitant]
     Dosage: 0.5 MG, BID
     Dates: start: 20090330, end: 20090331
  68. MONTELUKAST [Concomitant]
     Indication: PRODUCT USED FOR UNKNOWN INDICATION
     Dosage: 5 MG, QD
     Dates: start: 20090318, end: 20090331
  69. TEICOPLANIN [Concomitant]
     Indication: PRODUCT USED FOR UNKNOWN INDICATION
     Dosage: 100 MG, UNK
     Dates: start: 20090220, end: 20090317
  70. ACYCLOVIR [Concomitant]
     Indication: INFECTION PROPHYLAXIS
     Dosage: 250 MG, QD
     Dates: start: 20090224, end: 20090311
  71. METHOTREXATE [Concomitant]
     Dosage: 8.5 MG, UNK
     Dates: start: 20090228, end: 20090228
  72. MEROPENEM [Concomitant]
     Indication: PRODUCT USED FOR UNKNOWN INDICATION
     Dosage: UNK
     Dates: start: 20090311, end: 20090323
  73. SODIUM PICOSULFATE [Concomitant]
     Dosage: 10 ML, QD
     Dates: start: 20090305, end: 20090305
  74. HEPARIN [Concomitant]
     Dosage: UNK
     Dates: start: 20090313, end: 20090313
  75. METHYLPREDNISOLONE SODIUM SUCCINATE [Concomitant]
     Indication: PREMEDICATION
     Dosage: 20 MG, QD
     Dates: start: 20090220, end: 20090224
  76. MENATETRENONE [Concomitant]
     Indication: PRODUCT USED FOR UNKNOWN INDICATION
     Dosage: 10 MG, UNK
     Dates: start: 20090224, end: 20090225
  77. MANGANESE CHLORIDE ZINC SULFATE COMBINED DRUG [Concomitant]
     Indication: PRODUCT USED FOR UNKNOWN INDICATION
     Dosage: 2 ML, UNK
     Dates: start: 20090224, end: 20090331
  78. FILGRASTIM [Concomitant]
     Dosage: 300 MCG, UNK
     Dates: start: 20090328, end: 20090328
  79. MINOCYCLINE HYDROCHLORIDE [Concomitant]
     Indication: PRODUCT USED FOR UNKNOWN INDICATION
     Dosage: UNK
     Dates: start: 20090317, end: 20090323

REACTIONS (3)
  - CYTOMEGALOVIRUS TEST POSITIVE [None]
  - ACUTE RESPIRATORY DISTRESS SYNDROME [None]
  - EPSTEIN-BARR VIRUS ASSOCIATED LYMPHOPROLIFERATIVE DISORDER [None]
